FAERS Safety Report 11058207 (Version 1)
Quarter: 2015Q2

REPORT INFORMATION
  Report Type: Report from Study
  Country: US (occurrence: None)
  Receive Date: 20150421
  Receipt Date: 20150421
  Transmission Date: 20150821
  Serious: Yes (Hospitalization)
  Sender: FDA-Public Use
  Company Number: 2826752

PATIENT
  Age: 74 Year
  Sex: Male
  Weight: 94 kg

DRUGS (8)
  1. COLECALCIFEROL [Concomitant]
     Active Substance: CHOLECALCIFEROL
  2. MULTIVITAMIN [Concomitant]
     Active Substance: VITAMINS
  3. GEMCITABINE [Suspect]
     Active Substance: GEMCITABINE\GEMCITABINE HYDROCHLORIDE
     Indication: PANCREATIC CARCINOMA
     Dosage: 800 MG/M 2 MILLIGRAM(S)/SQ. METER (1 WEEK)
     Route: 042
     Dates: start: 20140603
  4. PACLITAXEL FOR INJECTION (PACLITAXEL) [Suspect]
     Active Substance: PACLITAXEL
     Indication: PANCREATIC CARCINOMA
     Dosage: 100 MG/M  2 MILLIGRAM(S)/SQ. METER (1 WEEK)
     Route: 042
     Dates: start: 20140603
  5. SENNA [Concomitant]
     Active Substance: SENNA LEAF\SENNOSIDES\SENNOSIDES A AND B
  6. ENZALUTAMIDE [Concomitant]
     Active Substance: ENZALUTAMIDE
  7. OMEPRAZOLE. [Concomitant]
     Active Substance: OMEPRAZOLE
  8. MACROGOL [Concomitant]
     Active Substance: POLYETHYLENE GLYCOLS

REACTIONS (3)
  - Underdose [None]
  - Hypersensitivity [None]
  - Cellulitis [None]

NARRATIVE: CASE EVENT DATE: 20140823
